FAERS Safety Report 8059461-1 (Version None)
Quarter: 2012Q1

REPORT INFORMATION
  Report Type: 
  Country: None (occurrence: None)
  Receive Date: 20120120
  Receipt Date: 20120116
  Transmission Date: 20120608
  Serious: Yes (Death, Hospitalization)
  Sender: FDA-Public Use
  Company Number: BE-B.I. PHARMACEUTICALS,INC./RIDGEFIELD-2012-BL-00018BL

PATIENT
  Sex: Male
  Weight: 63 kg

DRUGS (8)
  1. LASIX [Suspect]
     Dosage: 60 MG
     Route: 048
  2. RANITIDINE [Concomitant]
  3. LORAMET [Concomitant]
  4. PRADAXA [Suspect]
     Indication: ATRIAL FIBRILLATION
     Dosage: 220 MG
     Dates: start: 20111006, end: 20111104
  5. ESCITALOPRAM [Suspect]
     Dates: start: 20111001, end: 20111001
  6. MIRTAZAPINE [Suspect]
     Dates: start: 20111001
  7. BISOPROLOL FUMARATE [Concomitant]
  8. PERFUSION [Concomitant]

REACTIONS (10)
  - CEREBRAL HAEMANGIOMA [None]
  - CEREBRAL HAEMORRHAGE [None]
  - HYPOKALAEMIA [None]
  - SEPSIS [None]
  - FALL [None]
  - CONFUSIONAL STATE [None]
  - ATRIAL FIBRILLATION [None]
  - ESCHERICHIA INFECTION [None]
  - DEPRESSION [None]
  - DRUG INTERACTION [None]
